FAERS Safety Report 20603440 (Version 1)
Quarter: 2022Q1

REPORT INFORMATION
  Report Type: Report from Study
  Country: BR (occurrence: BR)
  Receive Date: 20220316
  Receipt Date: 20220316
  Transmission Date: 20220423
  Serious: Yes (Hospitalization)
  Sender: FDA-Public Use
  Company Number: BR-ABBVIE-21K-020-4068315-00

PATIENT
  Age: 49 Year
  Sex: Female
  Weight: 70 kg

DRUGS (2)
  1. RINVOQ [Suspect]
     Active Substance: UPADACITINIB
     Indication: Rheumatoid arthritis
     Dosage: UNSPECIFIED DOSE
     Route: 048
     Dates: start: 20200921, end: 20210728
  2. RINVOQ [Suspect]
     Active Substance: UPADACITINIB
     Dosage: UNSPECIFIED DOSE
     Route: 048
     Dates: start: 202108

REACTIONS (1)
  - COVID-19 [Recovered/Resolved]

NARRATIVE: CASE EVENT DATE: 20210728
